FAERS Safety Report 5348083-9 (Version None)
Quarter: 2007Q2

REPORT INFORMATION
  Report Type: 
  Country: None (occurrence: None)
  Receive Date: 20070606
  Receipt Date: 20070531
  Transmission Date: 20071010
  Serious: Yes (Other)
  Sender: FDA-Public Use
  Company Number: KR-SANOFI-SYNTHELABO-A01200705642

PATIENT
  Age: 68 Year
  Sex: Male

DRUGS (9)
  1. TRAZODONE HCL [Concomitant]
     Indication: ANTIDEPRESSANT THERAPY
     Dosage: UNK
     Route: 048
  2. NAPROXEN [Concomitant]
     Indication: ANALGESIC THERAPY
     Dosage: UNK
     Route: 065
     Dates: start: 20070511
  3. RANITIDINE [Concomitant]
     Indication: PROPHYLAXIS
     Dosage: UNK
     Route: 065
     Dates: start: 20070511
  4. ASPIRIN LYSINE [Concomitant]
     Indication: DRUG USE FOR UNKNOWN INDICATION
     Route: 065
     Dates: start: 20070511, end: 20070511
  5. ZOLPIDEM [Concomitant]
     Indication: INSOMNIA
     Dosage: UNK
     Route: 048
  6. ASPIRIN [Suspect]
     Indication: THROMBOSIS PROPHYLAXIS
     Dosage: UNK
     Route: 048
     Dates: end: 20070510
  7. PLAVIX [Suspect]
     Indication: THROMBOSIS PROPHYLAXIS
     Route: 048
     Dates: start: 20070511, end: 20070513
  8. PLAVIX [Suspect]
     Indication: PERIPHERAL ARTERIAL OCCLUSIVE DISEASE
     Route: 048
     Dates: start: 20070511, end: 20070513
  9. TICLOPIDINE HCL [Suspect]
     Indication: THROMBOSIS PROPHYLAXIS
     Dosage: UNK
     Route: 048
     Dates: end: 20070510

REACTIONS (3)
  - EYE HAEMORRHAGE [None]
  - RETINAL DETACHMENT [None]
  - VISUAL ACUITY REDUCED [None]
